FAERS Safety Report 7129692-3 (Version None)
Quarter: 2010Q4

REPORT INFORMATION
  Report Type: 
  Country: None (occurrence: None)
  Receive Date: 20101130
  Receipt Date: 20101119
  Transmission Date: 20110411
  Serious: Yes (Death, Hospitalization)
  Sender: FDA-Public Use
  Company Number: JP-AMGEN-KDC440637

PATIENT

DRUGS (12)
  1. PANITUMUMAB [Suspect]
     Dosage: 6 MG/KG, Q2WK
     Route: 041
     Dates: start: 20100909, end: 20101004
  2. CORTICOSTEROIDS [Concomitant]
     Indication: PROPHYLAXIS
     Route: 065
  3. LUPRAC [Concomitant]
     Route: 048
  4. ALDACTONE [Concomitant]
     Route: 048
  5. MUCOSTA [Concomitant]
     Route: 048
  6. LOXONIN [Concomitant]
     Route: 048
  7. PYDOXAL [Concomitant]
     Route: 048
  8. ASPARA POTASSIUM [Concomitant]
     Route: 048
  9. OXINORM [Concomitant]
     Route: 048
  10. OXYCONTIN [Concomitant]
     Route: 048
  11. MINOMYCIN [Concomitant]
     Route: 048
  12. HIRUDOID SOFT [Concomitant]
     Route: 062

REACTIONS (4)
  - COLORECTAL CANCER [None]
  - CONDITION AGGRAVATED [None]
  - HYPERKALAEMIA [None]
  - LOSS OF CONSCIOUSNESS [None]
